FAERS Safety Report 21490570 (Version 1)
Quarter: 2022Q4

REPORT INFORMATION
  Report Type: Spontaneous
  Country: US (occurrence: US)
  Receive Date: 20221021
  Receipt Date: 20221021
  Transmission Date: 20230113
  Serious: Yes (Other)
  Sender: FDA-Public Use
  Company Number: US-NOVOPROD-968979

PATIENT
  Sex: Female

DRUGS (1)
  1. LEVEMIR [Suspect]
     Active Substance: INSULIN DETEMIR
     Indication: Type 1 diabetes mellitus
     Dosage: 30 IU, BID (MORNING AND NIGHT )
     Route: 058
     Dates: start: 202209

REACTIONS (3)
  - Periarthritis [Not Recovered/Not Resolved]
  - Blood glucose fluctuation [Recovered/Resolved]
  - Blood glucose increased [Recovered/Resolved]
